FAERS Safety Report 23124515 (Version 1)
Quarter: 2023Q4

REPORT INFORMATION
  Report Type: Spontaneous
  Country: US (occurrence: None)
  Receive Date: 20231029
  Receipt Date: 20231029
  Transmission Date: 20240109
  Serious: Yes (Hospitalization, Disabling)
  Sender: FDA-Public Use
  Company Number: None

PATIENT
  Age: 40 Year
  Sex: Female
  Weight: 93.6 kg

DRUGS (12)
  1. ATORVASTATIN [Suspect]
     Active Substance: ATORVASTATIN
     Indication: Blood cholesterol increased
     Dosage: OTHER QUANTITY : 1 TABLET(S);?
     Route: 048
     Dates: start: 20191008, end: 20230111
  2. OLYMPIC [Concomitant]
  3. Gabapenting [Concomitant]
  4. METFORMIN [Concomitant]
  5. INSULIN NOS [Concomitant]
     Active Substance: INSULIN NOS
  6. lispro [Concomitant]
  7. DULOXETINE [Concomitant]
     Active Substance: DULOXETINE
  8. Famotodin [Concomitant]
  9. PREDNISONE [Concomitant]
     Active Substance: PREDNISONE
  10. Location B vitamin [Concomitant]
  11. MAGNESIUM [Concomitant]
     Active Substance: MAGNESIUM
  12. CALCIUM [Concomitant]
     Active Substance: CALCIUM

REACTIONS (2)
  - Myopathy [None]
  - Muscle necrosis [None]

NARRATIVE: CASE EVENT DATE: 20230114
